FAERS Safety Report 4497207-4 (Version None)
Quarter: 2004Q3

REPORT INFORMATION
  Report Type: 
  Country: None (occurrence: None)
  Receive Date: 20040927
  Receipt Date: 20040528
  Transmission Date: 20050211
  Serious: No
  Sender: FDA-Public Use
  Company Number: USA040668866

PATIENT
  Age: 47 Year
  Sex: Male
  Weight: 84 kg

DRUGS (3)
  1. STRATTERA [Suspect]
     Indication: ATTENTION DEFICIT/HYPERACTIVITY DISORDER
     Dosage: 40 MG DAY
     Dates: start: 20040507
  2. EFFEXOR [Concomitant]
  3. ZYPREXA [Concomitant]

REACTIONS (6)
  - CONSTIPATION [None]
  - HYPERHIDROSIS [None]
  - MYALGIA [None]
  - NERVE COMPRESSION [None]
  - TESTICULAR PAIN [None]
  - URINARY HESITATION [None]
